FAERS Safety Report 7363155-5 (Version None)
Quarter: 2011Q1

REPORT INFORMATION
  Report Type: 
  Country: None (occurrence: None)
  Receive Date: 20110321
  Receipt Date: 20081017
  Transmission Date: 20110831
  Serious: Yes (Death, Other)
  Sender: FDA-Public Use
  Company Number: US-BAYER-200836268NA

PATIENT
  Sex: Male
  Weight: 61.224 kg

DRUGS (16)
  1. METOPROLOL [Concomitant]
     Dosage: 50 MG, BID
     Route: 048
  2. HEPARIN SODIUM [Concomitant]
     Dosage: 25,000 UNITS
     Route: 042
     Dates: start: 20070919, end: 20070919
  3. INSULIN [Concomitant]
     Route: 058
  4. CLOPIDOGREL [Concomitant]
     Dosage: 75 MG, QD
     Route: 048
  5. NITROGLYCERIN [Concomitant]
     Dosage: PRN
     Route: 060
  6. NORVASC [Concomitant]
     Dosage: 20 MG, QD
     Route: 048
  7. LASIX [Concomitant]
     Dosage: 40 MG, QD
     Route: 048
  8. PLATELETS [Concomitant]
     Dosage: 60CC
     Route: 042
     Dates: start: 20070919, end: 20070919
  9. EPOGEN [Concomitant]
     Route: 058
  10. TRASYLOL [Suspect]
     Indication: CORONARY ARTERY BYPASS
     Dosage: INITIAL TEST DOSE OF 1.4MG LOADING DOSE OF 100 ML THEN 50 ML/ HR MAINTENANCE DOSE
     Route: 042
     Dates: start: 20070919
  11. LISINOPRIL [Concomitant]
     Dosage: 10 MG, QD
     Route: 048
  12. LIPITOR [Concomitant]
     Dosage: 40 MG, QD
  13. INSULIN [Concomitant]
     Dosage: 13 ML, UNK
     Route: 042
     Dates: start: 20070919
  14. ACETYLSALICYLIC ACID SRT [Concomitant]
     Dosage: 81 MG, QD
     Route: 048
  15. NITROGLYCERIN [Concomitant]
     Dosage: 3 CC/HR
     Route: 042
     Dates: start: 20070919
  16. DOPAMINE [Concomitant]
     Dosage: 3MCG/KG/MIN
     Route: 042
     Dates: start: 20070919

REACTIONS (12)
  - DEATH [None]
  - RENAL INJURY [None]
  - ANHEDONIA [None]
  - MULTI-ORGAN FAILURE [None]
  - FEAR [None]
  - PAIN [None]
  - INJURY [None]
  - ANXIETY [None]
  - RENAL FAILURE [None]
  - RENAL IMPAIRMENT [None]
  - STRESS [None]
  - UNEVALUABLE EVENT [None]
